FAERS Safety Report 7362224-3 (Version None)
Quarter: 2011Q1

REPORT INFORMATION
  Report Type: 
  Country: None (occurrence: None)
  Receive Date: 20110318
  Receipt Date: 20110309
  Transmission Date: 20110831
  Serious: Yes (Hospitalization, Other)
  Sender: FDA-Public Use
  Company Number: BE-ROCHE-764729

PATIENT
  Sex: Male
  Weight: 86 kg

DRUGS (3)
  1. PEGASYS [Suspect]
     Indication: HEPATITIS C
     Route: 058
     Dates: start: 20100809, end: 20101105
  2. PANTOMED [Concomitant]
     Indication: PROPHYLAXIS
     Route: 048
     Dates: end: 20101105
  3. COPEGUS [Suspect]
     Indication: HEPATITIS C
     Dosage: FREQUENCY: DAILY
     Route: 048
     Dates: start: 20100809, end: 20101105

REACTIONS (6)
  - COAGULOPATHY [None]
  - ANAEMIA [None]
  - RENAL FAILURE ACUTE [None]
  - PNEUMONIA [None]
  - ASCITES [None]
  - HEPATIC CIRRHOSIS [None]
